FAERS Safety Report 23772788 (Version 1)
Quarter: 2024Q2

REPORT INFORMATION
  Report Type: Spontaneous
  Country: US (occurrence: None)
  Receive Date: 20240422
  Receipt Date: 20240422
  Transmission Date: 20240716
  Serious: Yes (Hospitalization)
  Sender: FDA-Public Use
  Company Number: None

PATIENT
  Age: 75 Year
  Sex: Female
  Weight: 54.45 kg

DRUGS (7)
  1. PEMBROLIZUMAB [Suspect]
     Active Substance: PEMBROLIZUMAB
     Indication: Brain neoplasm malignant
     Dosage: OTHER FREQUENCY : SINGLE INFUSION;?
     Route: 042
     Dates: start: 20240327
  2. ONDANSETRON [Concomitant]
     Active Substance: ONDANSETRON
     Dates: start: 20240327
  3. SIMVASTATIN [Concomitant]
     Active Substance: SIMVASTATIN
  4. CALCIUM CARBONATE\CHOLECALCIFEROL [Concomitant]
     Active Substance: CALCIUM CARBONATE\CHOLECALCIFEROL
  5. LORATADINE [Concomitant]
     Active Substance: LORATADINE
  6. VITAMINS [Concomitant]
     Active Substance: VITAMINS
  7. POLYETHYLENE GLYCOL 3350 [Concomitant]
     Active Substance: POLYETHYLENE GLYCOL 3350

REACTIONS (6)
  - Brain oedema [None]
  - Upper respiratory tract infection [None]
  - Metapneumovirus infection [None]
  - Gait disturbance [None]
  - Asthenia [None]
  - Blood phosphorus decreased [None]

NARRATIVE: CASE EVENT DATE: 20240407
